FAERS Safety Report 10997704 (Version 1)
Quarter: 2015Q2

REPORT INFORMATION
  Report Type: Spontaneous
  Country: US (occurrence: None)
  Receive Date: 20150406
  Receipt Date: 20150406
  Transmission Date: 20150821
  Serious: Yes (Hospitalization)
  Sender: FDA-Public Use
  Company Number: 2821656

PATIENT
  Age: 6 Year
  Sex: Male

DRUGS (7)
  1. VINCRISTINE SULFATE. [Suspect]
     Active Substance: VINCRISTINE SULFATE
     Indication: B PRECURSOR TYPE ACUTE LEUKAEMIA
     Dates: start: 20141203, end: 20141203
  2. CLOFARABINE [Suspect]
     Active Substance: CLOFARABINE
     Indication: B PRECURSOR TYPE ACUTE LEUKAEMIA
     Dates: start: 20140818, end: 20140821
  3. METHOTREXATE [Suspect]
     Active Substance: METHOTREXATE
     Indication: B PRECURSOR TYPE ACUTE LEUKAEMIA
     Route: 037
     Dates: start: 20141203, end: 20141231
  4. PREDNISOLONE. [Suspect]
     Active Substance: PREDNISOLONE
     Indication: B PRECURSOR TYPE ACUTE LEUKAEMIA
     Dates: start: 20141203, end: 20150104
  5. IMMUNOGLOBULIN [Concomitant]
     Active Substance: HUMAN IMMUNOGLOBULIN G
  6. CEFTRIAXONE. [Concomitant]
     Active Substance: CEFTRIAXONE
  7. MERCAPTOPURINE. [Suspect]
     Active Substance: MERCAPTOPURINE
     Indication: B PRECURSOR TYPE ACUTE LEUKAEMIA
     Dates: start: 20141203, end: 20150106

REACTIONS (8)
  - Inflammation [None]
  - Cytomegalovirus viraemia [None]
  - Neutropenia [None]
  - Epstein-Barr viraemia [None]
  - Histiocytosis haematophagic [None]
  - Pyrexia [None]
  - Immune system disorder [None]
  - Rash [None]

NARRATIVE: CASE EVENT DATE: 20150107
